FAERS Safety Report 9806796 (Version 1)
Quarter: 2014Q1

REPORT INFORMATION
  Report Type: Spontaneous
  Country: US (occurrence: US)
  Receive Date: 20140109
  Receipt Date: 20140109
  Transmission Date: 20141002
  Serious: Yes (Hospitalization)
  Sender: FDA-Public Use
  Company Number: US-ABBVIE-13P-163-1141033-00

PATIENT
  Age: 63 Year
  Sex: Female
  Weight: 55.3 kg

DRUGS (7)
  1. HYDROCODONE [Suspect]
     Indication: PAIN
     Route: 048
     Dates: start: 201202, end: 20120920
  2. ERLOTINIB\PLACEBO [Suspect]
     Indication: NON-SMALL CELL LUNG CANCER
     Dates: start: 20120820, end: 20120917
  3. ROBAFEN COUGH [Suspect]
     Indication: COUGH
     Route: 048
     Dates: start: 20120816, end: 20120912
  4. FENTANYL [Concomitant]
     Indication: PAIN
     Route: 062
     Dates: start: 20120228
  5. FENTANYL [Concomitant]
     Indication: PRODUCT USED FOR UNKNOWN INDICATION
  6. PROTONIX [Concomitant]
     Indication: REFLUX GASTRITIS
     Dates: start: 201202
  7. ELAVIL [Concomitant]
     Indication: PARAESTHESIA
     Dates: start: 20120803

REACTIONS (2)
  - Nausea [Recovered/Resolved]
  - Vomiting [Recovered/Resolved]
